FAERS Safety Report 24345068 (Version 1)
Quarter: 2024Q3

REPORT INFORMATION
  Report Type: Spontaneous
  Country: FR (occurrence: FR)
  Receive Date: 20240920
  Receipt Date: 20240920
  Transmission Date: 20241017
  Serious: Yes (Life-Threatening, Other)
  Sender: NOVARTIS
  Company Number: None

PATIENT
  Age: 51 Year
  Sex: Male

DRUGS (7)
  1. ATENOLOL [Suspect]
     Active Substance: ATENOLOL
     Indication: Wrong patient
     Dosage: 50 MG, ONCE/SINGLE
     Route: 048
     Dates: start: 20240822, end: 20240822
  2. CARBAMAZEPINE [Suspect]
     Active Substance: CARBAMAZEPINE
     Indication: Wrong patient
     Dosage: 400 MG, ONCE/SINGLE
     Route: 048
     Dates: start: 20240822, end: 20240822
  3. PIPAMPERONE [Suspect]
     Active Substance: PIPAMPERONE
     Indication: Wrong patient
     Dosage: 1 DOSAGE FORM, ONCE/SINGLE (SCORED TABLET)
     Route: 048
     Dates: start: 20240822, end: 20240822
  4. OXAZEPAM [Suspect]
     Active Substance: OXAZEPAM
     Indication: Wrong patient
     Dosage: 1 DOSAGE FORM, ONCE/SINGLE (COMPRESSED)
     Route: 048
     Dates: start: 20240822, end: 20240822
  5. TROPATEPINE HYDROCHLORIDE [Suspect]
     Active Substance: TROPATEPINE HYDROCHLORIDE
     Indication: Wrong patient
     Dosage: 1 DOSAGE FORM, ONCE/SINGLE (COMPRESSED)
     Route: 048
     Dates: start: 20240822, end: 20240822
  6. LOXAPINE [Suspect]
     Active Substance: LOXAPINE
     Indication: Wrong patient
     Dosage: 1 DOSAGE FORM, ONCE/SINGLE
     Route: 048
     Dates: start: 20240822, end: 20240822
  7. SERTRALINE HYDROCHLORIDE [Suspect]
     Active Substance: SERTRALINE HYDROCHLORIDE
     Indication: Wrong patient
     Dosage: 100 MG, ONCE/SINGLE
     Route: 048
     Dates: start: 20240822, end: 20240822

REACTIONS (4)
  - Bradycardia [Recovered/Resolved]
  - Hypotension [Recovered/Resolved]
  - Wrong patient [Recovered/Resolved]
  - Somnolence [Recovered/Resolved]

NARRATIVE: CASE EVENT DATE: 20240822
